FAERS Safety Report 17845010 (Version 1)
Quarter: 2020Q2

REPORT INFORMATION
  Report Type: Spontaneous
  Country: PE (occurrence: PE)
  Receive Date: 20200601
  Receipt Date: 20200601
  Transmission Date: 20200714
  Serious: Yes (Other)
  Sender: FDA-Public Use
  Company Number: PE-US-PROVELL PHARMACEUTICALS LLC-9166043

PATIENT
  Sex: Female

DRUGS (1)
  1. EUTHYROX [Suspect]
     Active Substance: LEVOTHYROXINE SODIUM
     Indication: HYPOTHYROIDISM
     Dosage: TOOK 75 GM ONCE

REACTIONS (5)
  - Fatigue [Unknown]
  - Treatment noncompliance [Unknown]
  - Choking [Unknown]
  - Palpitations [Unknown]
  - Dyspnoea [Unknown]
